FAERS Safety Report 25780159 (Version 3)
Quarter: 2025Q4

REPORT INFORMATION
  Report Type: Spontaneous
  Country: US (occurrence: US)
  Receive Date: 20250909
  Receipt Date: 20251009
  Transmission Date: 20260118
  Serious: No
  Sender: EMD SERONO INC
  Company Number: US-Merck Healthcare KGaA-2025044799

PATIENT
  Sex: Female

DRUGS (2)
  1. REBIF [Suspect]
     Active Substance: INTERFERON BETA-1A
     Indication: Multiple sclerosis
     Dates: start: 202209
  2. REBIF [Suspect]
     Active Substance: INTERFERON BETA-1A
     Dates: start: 20240326

REACTIONS (2)
  - Muscle spasms [Unknown]
  - Neuralgia [Unknown]
